FAERS Safety Report 17844106 (Version 1)
Quarter: 2020Q2

REPORT INFORMATION
  Report Type: Report from Study
  Country: None (occurrence: US)
  Receive Date: 20200601
  Receipt Date: 20200601
  Transmission Date: 20200714
  Serious: Yes (Other)
  Sender: FDA-Public Use
  Company Number: US-ABBVIE-19K-163-2997351-00

PATIENT
  Sex: Male

DRUGS (1)
  1. HUMIRA [Suspect]
     Active Substance: ADALIMUMAB
     Indication: RHEUMATOID ARTHRITIS
     Dosage: CITRATE FREE
     Route: 058

REACTIONS (13)
  - Loss of consciousness [Recovering/Resolving]
  - Stress [Recovering/Resolving]
  - Hip arthroplasty [Recovered/Resolved]
  - Neck injury [Recovering/Resolving]
  - Pain in extremity [Recovering/Resolving]
  - Fall [Recovering/Resolving]
  - Productive cough [Recovering/Resolving]
  - Hip arthroplasty [Recovering/Resolving]
  - Influenza [Recovered/Resolved]
  - Asthma [Recovering/Resolving]
  - Head injury [Recovering/Resolving]
  - Concussion [Unknown]
  - Arthritis [Not Recovered/Not Resolved]

NARRATIVE: CASE EVENT DATE: 2017
